FAERS Safety Report 7447940-7 (Version None)
Quarter: 2011Q2

REPORT INFORMATION
  Report Type: 
  Country: None (occurrence: None)
  Receive Date: 20110429
  Receipt Date: 20110419
  Transmission Date: 20111010
  Serious: Yes (Other)
  Sender: FDA-Public Use
  Company Number: US-ELI_LILLY_AND_COMPANY-US201104005964

PATIENT

DRUGS (2)
  1. GEMCITABINE HYDROCHLORIDE [Suspect]
     Dosage: OVER 30 MINUTES PERIOD
     Route: 042
  2. PANOBINOSTAT [Concomitant]
     Dosage: (EVERY TWO OR THREE TIMES WEEKLY), IN MORNING, AFTER 2 HOURS FASTING
     Route: 048

REACTIONS (1)
  - HYPOPHOSPHATAEMIA [None]
